FAERS Safety Report 9799347 (Version 1)
Quarter: 2014Q1

REPORT INFORMATION
  Report Type: Spontaneous
  Country: BR (occurrence: BR)
  Receive Date: 20140106
  Receipt Date: 20140106
  Transmission Date: 20141002
  Serious: Yes (Other)
  Sender: FDA-Public Use
  Company Number: BR-PFIZER INC-2014000687

PATIENT
  Age: 62 Year
  Sex: Female

DRUGS (1)
  1. LIPITOR [Suspect]
     Indication: CATHETERISATION CARDIAC
     Dosage: 20 MG, UNK
     Route: 048
     Dates: start: 2012, end: 201307

REACTIONS (2)
  - Herpes virus infection [Not Recovered/Not Resolved]
  - Off label use [Recovered/Resolved]
